FAERS Safety Report 9749567 (Version 1)
Quarter: 2013Q4

REPORT INFORMATION
  Report Type: Spontaneous
  Country: KR (occurrence: None)
  Receive Date: 20131209
  Receipt Date: 20131209
  Transmission Date: 20140711
  Serious: Yes (Other)
  Sender: FDA-Public Use
  Company Number: SYM-2013-13517

PATIENT
  Sex: 0

DRUGS (5)
  1. FLUOROURACIL (FLUOROURACIL) [Suspect]
     Indication: PANCREATIC CARCINOMA
     Route: 040
  2. OXALIPLATIN (OXALIPLATIN) [Suspect]
     Indication: PANCREATIC CARCINOMA
  3. LEUCOVORIN (FOLINIC ACID) [Suspect]
     Indication: PANCREATIC CARCINOMA
  4. IRINOTECAN (IRINOTECAN) [Suspect]
     Indication: PANCREATIC CARCINOMA
  5. GEMCITABINE (GEMCITABINE) [Concomitant]

REACTIONS (1)
  - Febrile neutropenia [None]
